FAERS Safety Report 5967997-X (Version None)
Quarter: 2008Q4

REPORT INFORMATION
  Report Type: 
  Country: None (occurrence: None)
  Receive Date: 20081121
  Receipt Date: 20081121
  Transmission Date: 20090506
  Serious: Yes (Other)
  Sender: FDA-Public Use
  Company Number: None

PATIENT
  Age: 36 Year
  Sex: Female
  Weight: 73.9363 kg

DRUGS (1)
  1. CELEBREX [Suspect]
     Indication: ARTHRITIS
     Dosage: 200 MG. 2X A DAY PO
     Route: 048
     Dates: start: 20081119, end: 20081120

REACTIONS (4)
  - DRUG TOXICITY [None]
  - FEELING JITTERY [None]
  - TREMOR [None]
  - URTICARIA [None]
